FAERS Safety Report 5916451-X (Version None)
Quarter: 2008Q4

REPORT INFORMATION
  Report Type: 
  Country: None (occurrence: None)
  Receive Date: 20081013
  Receipt Date: 20081002
  Transmission Date: 20090506
  Serious: Yes (Life-Threatening, Other)
  Sender: FDA-Public Use
  Company Number: FR-ABBOTT-08P-056-0480222-00

PATIENT
  Sex: Male

DRUGS (4)
  1. RITONAVIR SOFT GELATIN CAPSULES [Suspect]
     Indication: HIV INFECTION
     Dates: start: 20080409
  2. ATAZANAVIR SULFATE [Concomitant]
     Indication: HIV INFECTION
     Dates: start: 20080409
  3. EMTRICITABINE [Concomitant]
     Indication: HIV INFECTION
     Dosage: 245/300MG/DAY
     Dates: start: 20080409
  4. BACTRIM [Concomitant]
     Indication: PROPHYLAXIS
     Dosage: 800/160 MG
     Dates: start: 20071015

REACTIONS (4)
  - DRUG INTERACTION [None]
  - HYPERBILIRUBINAEMIA [None]
  - JAUNDICE [None]
  - OVERDOSE [None]
